FAERS Safety Report 4758398-0 (Version None)
Quarter: 2005Q3

REPORT INFORMATION
  Report Type: 
  Country: None (occurrence: None)
  Receive Date: 20050826
  Receipt Date: 20050503
  Transmission Date: 20060218
  Serious: Yes (Other)
  Sender: FDA-Public Use
  Company Number: WAES 0502USA01001

PATIENT
  Age: 66 Year
  Sex: Female
  Weight: 69.8539 kg

DRUGS (16)
  1. ZETIA [Suspect]
     Indication: HYPERLIPIDAEMIA
     Dosage: 10 MG/DAILY/PO
     Route: 048
     Dates: start: 20050129, end: 20050208
  2. LOTENSIN [Suspect]
     Indication: BLOOD PRESSURE
     Dates: start: 20000101
  3. ALLEGRA [Concomitant]
  4. ECOTRIN [Concomitant]
  5. FOLTX [Concomitant]
  6. PLAVIX [Concomitant]
  7. PRAVACHOL [Concomitant]
  8. PREMARIN [Concomitant]
  9. MAGNESIUM SULFATE [Concomitant]
  10. ASCORBIC ACID [Concomitant]
  11. ATENOLOL [Concomitant]
  12. CALCIUM (UNSPECIFIED) [Concomitant]
  13. FUROSEMIDE [Concomitant]
  14. GLUCOSAMINE [Concomitant]
  15. PARAFFIN [Concomitant]
  16. VITAMIN B (UNSPECIFIED) [Concomitant]

REACTIONS (3)
  - ANGIONEUROTIC OEDEMA [None]
  - DYSPHAGIA [None]
  - PHARYNGOLARYNGEAL PAIN [None]
